FAERS Safety Report 13586903 (Version 1)
Quarter: 2017Q2

REPORT INFORMATION
  Report Type: Spontaneous
  Country: US (occurrence: US)
  Receive Date: 20170526
  Receipt Date: 20170526
  Transmission Date: 20170830
  Serious: No
  Sender: FDA-Public Use
  Company Number: US-ROCHE-753860

PATIENT
  Sex: Female
  Weight: 11.6 kg

DRUGS (4)
  1. NEORAL [Concomitant]
     Active Substance: CYCLOSPORINE
     Route: 065
  2. VALCYTE [Suspect]
     Active Substance: VALGANCICLOVIR HYDROCHLORIDE
     Route: 048
  3. VALCYTE [Suspect]
     Active Substance: VALGANCICLOVIR HYDROCHLORIDE
     Route: 048
  4. VALCYTE [Suspect]
     Active Substance: VALGANCICLOVIR HYDROCHLORIDE
     Indication: CYTOMEGALOVIRUS INFECTION
     Route: 048

REACTIONS (2)
  - Viral upper respiratory tract infection [Unknown]
  - Cytomegalovirus infection [Unknown]
